FAERS Safety Report 6198149-9 (Version None)
Quarter: 2009Q2

REPORT INFORMATION
  Report Type: 
  Country: None (occurrence: None)
  Receive Date: 20090515
  Receipt Date: 20080325
  Transmission Date: 20091009
  Serious: Yes (Hospitalization, Other)
  Sender: FDA-Public Use
  Company Number: APP200800223

PATIENT
  Age: 43 Year
  Sex: Female
  Weight: 78.0187 kg

DRUGS (9)
  1. VANCOMYCIN HYDROCHLORIDE [Suspect]
     Indication: WOUND INFECTION STAPHYLOCOCCAL
     Dosage: 1750 MG, 1 IN 8 HR, INTRAVENOUS
     Route: 042
     Dates: start: 20080211, end: 20080216
  2. VANCOMYCIN HYDROCHLORIDE [Suspect]
  3. STEILE VANCOMYCIN HYDROCHLORIDE, USP VANCOMYCIN HYDROCHLORIDE) [Concomitant]
  4. VANCOMYCIN HYDROCHLORIDE [Concomitant]
  5. STEILE VANCOMYCIN HYDROCHLORIDE, USP VANCOMYCIN HYDROCHLORIDE) [Concomitant]
  6. VANCOMYCIN HYDROCHLORIDE [Suspect]
  7. VANCOMYCIN HYDROCHLORIDE [Suspect]
  8. VANCOMYCIN HYDROCHLORIDE [Suspect]
  9. VANCOMYCIN HYDROCHLORIDE [Suspect]

REACTIONS (1)
  - NEPHROPATHY TOXIC [None]
